FAERS Safety Report 6791353-8 (Version None)
Quarter: 2010Q2

REPORT INFORMATION
  Report Type: 
  Country: None (occurrence: None)
  Receive Date: 20100624
  Receipt Date: 20100621
  Transmission Date: 20101027
  Serious: No
  Sender: FDA-Public Use
  Company Number: US-BAYER-201025733NA

PATIENT
  Age: 47 Year
  Sex: Female

DRUGS (1)
  1. MAGNEVIST [Suspect]
     Indication: MIGRAINE
     Dosage: TOTAL DAILY DOSE: 14 ML  UNIT DOSE: 15 ML
     Dates: start: 20100611, end: 20100611

REACTIONS (4)
  - CHEST DISCOMFORT [None]
  - DYSPHAGIA [None]
  - HEADACHE [None]
  - PALPITATIONS [None]
